FAERS Safety Report 9913207 (Version 1)
Quarter: 2014Q1

REPORT INFORMATION
  Report Type: Spontaneous
  Country: US (occurrence: None)
  Receive Date: 20140219
  Receipt Date: 20140219
  Transmission Date: 20141002
  Serious: Yes (Other)
  Sender: FDA-Public Use
  Company Number: None

PATIENT
  Age: 57 None
  Sex: 0

DRUGS (1)
  1. ZOLPIDEM [Suspect]
     Indication: INSOMNIA
     Dosage: TRIED FOR 1-2 MONTHS
     Route: 048

REACTIONS (3)
  - Insomnia [None]
  - Drug ineffective [None]
  - Product substitution issue [None]
